FAERS Safety Report 23538578 (Version 1)
Quarter: 2024Q1

REPORT INFORMATION
  Report Type: Spontaneous
  Country: GB (occurrence: GB)
  Receive Date: 20240219
  Receipt Date: 20240219
  Transmission Date: 20240410
  Serious: Yes (Hospitalization)
  Sender: FDA-Public Use
  Company Number: None

PATIENT
  Age: 80 Year
  Sex: Male
  Weight: 88 kg

DRUGS (1)
  1. EDOXABAN [Suspect]
     Active Substance: EDOXABAN
     Indication: Atrial fibrillation
     Dosage: 100 MG, QD (100 MG IN MORNING)
     Route: 065
     Dates: start: 20220601, end: 20230323

REACTIONS (7)
  - Dyspnoea [Recovered/Resolved]
  - Duodenitis [Unknown]
  - Dizziness [Recovered/Resolved]
  - Haematochezia [Recovered/Resolved]
  - Gastric haemorrhage [Unknown]
  - Haemoglobin decreased [Unknown]
  - Medication error [Unknown]

NARRATIVE: CASE EVENT DATE: 20230323
